FAERS Safety Report 4429988-X (Version None)
Quarter: 2004Q3

REPORT INFORMATION
  Report Type: 
  Country: None (occurrence: None)
  Receive Date: 20040816
  Receipt Date: 20040803
  Transmission Date: 20050211
  Serious: Yes (Hospitalization, Other)
  Sender: FDA-Public Use
  Company Number: 002-0981-M0200335

PATIENT
  Age: 60 Year
  Sex: Male
  Weight: 122 kg

DRUGS (8)
  1. ATORVASTATIN CALCIUM [Suspect]
     Indication: ILL-DEFINED DISORDER
     Dosage: 10 MG (DAILY), ORAL
     Route: 048
     Dates: start: 20011201, end: 20020225
  2. AMIODARONE HCL [Concomitant]
  3. FUROSEMIDE [Concomitant]
  4. RANITIDINE [Concomitant]
  5. CARVEDILOL [Concomitant]
  6. LEVOTHYROXINE SODIUM [Concomitant]
  7. ASPIRIN [Concomitant]
  8. CANDESARTAN (CANDESARTAN) [Concomitant]

REACTIONS (24)
  - ARTHRALGIA [None]
  - BLOOD GLUCOSE INCREASED [None]
  - BLOOD PRESSURE SYSTOLIC INCREASED [None]
  - CARDIAC MURMUR [None]
  - CONSTIPATION [None]
  - DIFFICULTY IN WALKING [None]
  - EDENTULOUS [None]
  - GYNAECOMASTIA [None]
  - HAEMOGLOBIN DECREASED [None]
  - HEARING IMPAIRED [None]
  - LEUKOCYTOSIS [None]
  - LIVER PALPABLE SUBCOSTAL [None]
  - NEUTROPHILIA [None]
  - NOCTURIA [None]
  - OBESITY [None]
  - OEDEMA PERIPHERAL [None]
  - PAIN IN EXTREMITY [None]
  - PARALYSIS [None]
  - RED BLOOD CELL COUNT DECREASED [None]
  - RENAL FAILURE [None]
  - RHABDOMYOLYSIS [None]
  - SKIN ULCER [None]
  - URINARY TRACT INFECTION [None]
  - WEIGHT INCREASED [None]
